FAERS Safety Report 17071586 (Version 1)
Quarter: 2019Q4

REPORT INFORMATION
  Report Type: Spontaneous
  Country: US (occurrence: US)
  Receive Date: 20191125
  Receipt Date: 20191125
  Transmission Date: 20200122
  Serious: No
  Sender: FDA-Public Use
  Company Number: US-BAYER-2019-212171

PATIENT
  Age: 82 Year
  Sex: Female

DRUGS (3)
  1. ONE-A-DAY [MINERALS NOS;VITAMINS NOS] [Concomitant]
  2. ASACOL [Concomitant]
     Active Substance: MESALAMINE
  3. ALEVE [Suspect]
     Active Substance: NAPROXEN SODIUM
     Indication: PAIN
     Route: 048

REACTIONS (2)
  - Muscle spasms [Unknown]
  - Expired product administered [None]
